FAERS Safety Report 8601242-1 (Version None)
Quarter: 2012Q3

REPORT INFORMATION
  Report Type: 
  Country: None (occurrence: None)
  Receive Date: 20120817
  Receipt Date: 20120814
  Transmission Date: 20120928
  Serious: Yes (Life-Threatening, Hospitalization)
  Sender: FDA-Public Use
  Company Number: PHHY2012KE070668

PATIENT
  Age: 35 Year
  Sex: Female

DRUGS (1)
  1. PARLODEL [Suspect]
     Indication: INFERTILITY FEMALE
     Dosage: 1 DF, DAILY
     Route: 048
     Dates: start: 20120806, end: 20120809

REACTIONS (13)
  - PAIN [None]
  - ARTHRALGIA [None]
  - HEADACHE [None]
  - HYPOTENSION [None]
  - NAUSEA [None]
  - NECK PAIN [None]
  - TREMOR [None]
  - ANGINA PECTORIS [None]
  - VERTIGO [None]
  - CHILLS [None]
  - PALPITATIONS [None]
  - MUSCLE SPASMS [None]
  - HYPERTENSION [None]
